FAERS Safety Report 6635231-3 (Version None)
Quarter: 2010Q1

REPORT INFORMATION
  Report Type: 
  Country: None (occurrence: None)
  Receive Date: 20100315
  Receipt Date: 20100305
  Transmission Date: 20100710
  Serious: Yes (Other)
  Sender: FDA-Public Use
  Company Number: GXKR2010GB02664

PATIENT
  Age: 81 Year
  Sex: Female

DRUGS (2)
  1. TRAMADOL (NGX) [Suspect]
     Indication: PAIN
     Dosage: 100 MG, BID
     Route: 048
     Dates: start: 20091101, end: 20100101
  2. PARACETAMOL [Concomitant]
     Indication: PAIN
     Dosage: 1 G/DAY
     Route: 048

REACTIONS (2)
  - ALOPECIA [None]
  - CONTUSION [None]
